FAERS Safety Report 10073906 (Version 1)
Quarter: 2014Q2

REPORT INFORMATION
  Report Type: Spontaneous
  Country: US (occurrence: US)
  Receive Date: 20140412
  Receipt Date: 20140412
  Transmission Date: 20141212
  Serious: No
  Sender: FDA-Public Use
  Company Number: US-009507513-1404USA004837

PATIENT
  Sex: Female

DRUGS (3)
  1. TEMODAR [Suspect]
     Indication: PRODUCT USED FOR UNKNOWN INDICATION
     Dosage: 250 MG, UNK
     Route: 048
     Dates: start: 201311
  2. TEMODAR [Suspect]
     Dosage: 340 MG, UNK
     Route: 048
  3. TEMODAR [Suspect]
     Dosage: 250 MG, UNK
     Route: 048

REACTIONS (2)
  - Rash [Not Recovered/Not Resolved]
  - Drug ineffective [Unknown]
